FAERS Safety Report 9916542 (Version 1)
Quarter: 2014Q1

REPORT INFORMATION
  Report Type: Report from Study
  Country: US (occurrence: US)
  Receive Date: 20140221
  Receipt Date: 20140221
  Transmission Date: 20141002
  Serious: Yes (Other)
  Sender: FDA-Public Use
  Company Number: US-ROCHE-1053743

PATIENT
  Age: 66 Year
  Sex: Male

DRUGS (2)
  1. BEVACIZUMAB [Suspect]
     Indication: COLORECTAL CANCER METASTATIC
     Route: 042
     Dates: start: 20120227
  2. ANAGRELIDE [Concomitant]
     Route: 048
     Dates: start: 20120326

REACTIONS (9)
  - Hordeolum [Not Recovered/Not Resolved]
  - Face injury [Not Recovered/Not Resolved]
  - Chapped lips [Not Recovered/Not Resolved]
  - Rhinalgia [Not Recovered/Not Resolved]
  - Lip pain [Not Recovered/Not Resolved]
  - Vision blurred [Not Recovered/Not Resolved]
  - Contusion [Not Recovered/Not Resolved]
  - Lip haemorrhage [Not Recovered/Not Resolved]
  - Nasal oedema [Not Recovered/Not Resolved]
